FAERS Safety Report 8215196 (Version 2)
Quarter: 2012Q4

REPORT INFORMATION
  Report Type: 
  Country: FR (occurrence: FR)
  Receive Date: 20111031
  Receipt Date: 20120911
  Transmission Date: 20130627
  Serious: Yes (Death, Other)
  Sender: FDA-Public Use
  Company Number: FR-RANBAXY-2011RR-49779

PATIENT
  Age: 24 Year
  Sex: Female
  Weight: 74 kg

DRUGS (1)
  1. PARACETAMOL [Suspect]
     Indication: TOOTHACHE
     Dosage: supposed ingested dose 71 mg/kg/24h
     Route: 048

REACTIONS (11)
  - Accidental overdose [Recovered/Resolved]
  - Nausea [None]
  - Vomiting [None]
  - Abdominal pain [None]
  - Pallor [None]
  - Hyperhidrosis [None]
  - Decreased appetite [None]
  - Toxicity to various agents [None]
  - Aspartate aminotransferase increased [None]
  - Alanine aminotransferase increased [None]
  - Gamma-glutamyltransferase increased [None]
